FAERS Safety Report 13698007 (Version 8)
Quarter: 2017Q4

REPORT INFORMATION
  Report Type: Report from Study
  Country: GB (occurrence: GB)
  Receive Date: 20170628
  Receipt Date: 20171101
  Transmission Date: 20180320
  Serious: Yes (Other)
  Sender: FDA-Public Use
  Company Number: GB-CELLTRION HEALTHCARE HUNGARY KFT-2017GB008372

PATIENT

DRUGS (7)
  1. MESALAZINE [Suspect]
     Active Substance: MESALAMINE
     Indication: PRODUCT USED FOR UNKNOWN INDICATION
     Dosage: 4 G, DAILY
     Route: 048
     Dates: start: 20170120, end: 20170425
  2. INFLECTRA [Suspect]
     Active Substance: INFLIXIMAB-DYYB
     Dosage: 450 MG, UNK
     Route: 065
     Dates: end: 20170424
  3. INFLECTRA [Suspect]
     Active Substance: INFLIXIMAB-DYYB
     Indication: IRRITABLE BOWEL SYNDROME
     Dosage: 450 MG, UNK EVERY 8 WEEKS
     Route: 042
     Dates: start: 20170117
  4. DIAZEPAM. [Concomitant]
     Active Substance: DIAZEPAM
     Indication: DEPRESSION
     Dosage: UNK
     Route: 048
  5. TRAMACET [Suspect]
     Active Substance: ACETAMINOPHEN\TRAMADOL
     Indication: PAIN
     Dosage: 50-100MG, TID
     Route: 048
     Dates: start: 201506, end: 20170425
  6. PARACETAMOL [Suspect]
     Active Substance: ACETAMINOPHEN
     Indication: PAIN
     Dosage: 1 G, UNK
     Route: 048
     Dates: end: 2017
  7. PARACETAMOL [Suspect]
     Active Substance: ACETAMINOPHEN
     Dosage: 1 G (3-4 TIMES PER DAY)
     Route: 048
     Dates: start: 201506, end: 20170425

REACTIONS (1)
  - Lupus hepatitis [Recovered/Resolved]

NARRATIVE: CASE EVENT DATE: 20170425
